FAERS Safety Report 16866422 (Version 1)
Quarter: 2019Q3

REPORT INFORMATION
  Report Type: Spontaneous
  Country: US (occurrence: US)
  Receive Date: 20190930
  Receipt Date: 20190930
  Transmission Date: 20191005
  Serious: Yes (Other)
  Sender: FDA-Public Use
  Company Number: US-ALLERGAN-1933732US

PATIENT
  Age: 60 Year
  Sex: Male

DRUGS (4)
  1. DEPAKOTE [Concomitant]
     Active Substance: DIVALPROEX SODIUM
     Indication: BIPOLAR DISORDER
     Dosage: 500 MG, TID
     Route: 048
  2. VRAYLAR [Suspect]
     Active Substance: CARIPRAZINE
     Indication: DEPRESSION
     Dosage: 1.5 MG, QD
     Route: 048
     Dates: start: 20190701, end: 201907
  3. PRAZOSIN. [Concomitant]
     Active Substance: PRAZOSIN
     Indication: POST-TRAUMATIC STRESS DISORDER
     Dosage: 4 MG, QHS
     Route: 048
  4. OTHER ATYPICALS [Concomitant]

REACTIONS (12)
  - Dyspnoea [Unknown]
  - Morbid thoughts [Unknown]
  - Vision blurred [Unknown]
  - Thinking abnormal [Recovered/Resolved]
  - Anxiety [Unknown]
  - Agitation [Unknown]
  - Neuroleptic malignant syndrome [Unknown]
  - Insomnia [Unknown]
  - Mental status changes [Unknown]
  - Condition aggravated [Unknown]
  - Aggression [Unknown]
  - Suicidal ideation [Unknown]

NARRATIVE: CASE EVENT DATE: 201907
